FAERS Safety Report 9678402 (Version 2)
Quarter: 2014Q2

REPORT INFORMATION
  Report Type: Spontaneous
  Country: US (occurrence: US)
  Receive Date: 20131108
  Receipt Date: 20140502
  Transmission Date: 20141212
  Serious: Yes (Hospitalization)
  Sender: FDA-Public Use
  Company Number: US-B.I. PHARMACEUTICALS,INC./RIDGEFIELD-2013-BI-34888BP

PATIENT
  Sex: Male
  Weight: 99.79 kg

DRUGS (7)
  1. PRADAXA [Suspect]
     Indication: ATRIAL FIBRILLATION
     Dosage: 300 MG
     Route: 048
     Dates: start: 20120213, end: 20120821
  2. LORAZEPAM [Concomitant]
     Route: 065
  3. METOPROLOL [Concomitant]
     Route: 065
  4. TEMAZEPAM [Concomitant]
     Route: 065
  5. BACLOFEN [Concomitant]
     Route: 065
  6. ASPIRIN [Concomitant]
     Route: 065
     Dates: end: 201207
  7. MELOXICAM [Concomitant]
     Route: 065
     Dates: end: 201207

REACTIONS (4)
  - Gastrointestinal haemorrhage [Unknown]
  - Anaemia [Unknown]
  - Urosepsis [Unknown]
  - Coagulopathy [Recovered/Resolved]
